FAERS Safety Report 4949717-0 (Version None)
Quarter: 2006Q1

REPORT INFORMATION
  Report Type: 
  Country: None (occurrence: None)
  Receive Date: 20060315
  Receipt Date: 20060224
  Transmission Date: 20060701
  Serious: Yes (Hospitalization, Other)
  Sender: FDA-Public Use
  Company Number: US200602005211

PATIENT
  Age: 59 Year
  Sex: Male

DRUGS (6)
  1. HUMALOG PEN [Suspect]
     Indication: DIABETES MELLITUS
     Dosage: 12 U, DAILY (1/D)
     Dates: start: 19860101
  2. HUMULIN N [Suspect]
     Indication: DIABETES MELLITUS
     Dosage: 22 U, DAILY (1/D)
     Dates: start: 19860101
  3. HUMALOG PEN [Concomitant]
  4. NITROGLYCERIN [Concomitant]
  5. ASPRO (ACETYLSALICYLIC ACID) [Concomitant]
  6. LIPITOR [Concomitant]

REACTIONS (5)
  - BLINDNESS [None]
  - DIALYSIS [None]
  - MEDICAL DEVICE COMPLICATION [None]
  - PHARMACEUTICAL PRODUCT COMPLAINT [None]
  - SHUNT OCCLUSION [None]
